FAERS Safety Report 12517760 (Version 1)
Quarter: 2016Q2

REPORT INFORMATION
  Report Type: Spontaneous
  Country: US (occurrence: US)
  Receive Date: 20160630
  Receipt Date: 20160630
  Transmission Date: 20160815
  Serious: Yes (Other)
  Sender: FDA-Public Use
  Company Number: US-TEVA-670556USA

PATIENT
  Age: 45 Year
  Sex: Female

DRUGS (1)
  1. ZECUITY [Suspect]
     Active Substance: SUMATRIPTAN SUCCINATE
     Indication: HEADACHE
     Route: 062
     Dates: start: 20160610, end: 20160610

REACTIONS (9)
  - Application site erythema [Recovered/Resolved]
  - Hyperhidrosis [Recovered/Resolved]
  - Application site discolouration [Recovered/Resolved]
  - Product physical issue [Unknown]
  - Incorrect drug administration duration [Unknown]
  - Application site inflammation [Recovered/Resolved]
  - Application site bruise [Not Recovered/Not Resolved]
  - Sunburn [Recovered/Resolved]
  - Application site pain [Recovered/Resolved]

NARRATIVE: CASE EVENT DATE: 201606
